FAERS Safety Report 7291019-4 (Version None)
Quarter: 2011Q1

REPORT INFORMATION
  Report Type: 
  Country: None (occurrence: None)
  Receive Date: 20110214
  Receipt Date: 20110209
  Transmission Date: 20110831
  Serious: Yes (Other)
  Sender: FDA-Public Use
  Company Number: GXKR2010DE05668

PATIENT
  Sex: Female
  Weight: 59 kg

DRUGS (1)
  1. PAROXAT [Suspect]
     Dosage: 10 MG DAILY, 1-10. WEEK OF PREGNANCY
     Route: 048

REACTIONS (3)
  - DRUG EXPOSURE DURING PREGNANCY [None]
  - NORMAL NEWBORN [None]
  - CAESAREAN SECTION [None]
